FAERS Safety Report 12053738 (Version 1)
Quarter: 2016Q1

REPORT INFORMATION
  Report Type: Spontaneous
  Country: CA (occurrence: CA)
  Receive Date: 20160209
  Receipt Date: 20160209
  Transmission Date: 20160526
  Serious: Yes (Other)
  Sender: FDA-Public Use
  Company Number: CA-PFIZER INC-2016048583

PATIENT
  Sex: Male

DRUGS (1)
  1. ADVIL COLD AND SINUS [Suspect]
     Active Substance: IBUPROFEN\PSEUDOEPHEDRINE HYDROCHLORIDE
     Dosage: 2 DF, UNK

REACTIONS (5)
  - Condition aggravated [Unknown]
  - Contraindicated drug administered [Unknown]
  - Asthma [Unknown]
  - Nausea [Unknown]
  - Heart rate increased [Unknown]
